FAERS Safety Report 4958095-2 (Version None)
Quarter: 2006Q1

REPORT INFORMATION
  Report Type: 
  Country: None (occurrence: None)
  Receive Date: 20060330
  Receipt Date: 20060324
  Transmission Date: 20060701
  Serious: Yes (Other)
  Sender: FDA-Public Use
  Company Number: GB-MERCK-0603GBR00120

PATIENT
  Age: 79 Year
  Sex: Female

DRUGS (7)
  1. ZETIA [Suspect]
     Route: 048
     Dates: start: 20051115, end: 20060311
  2. ASPIRIN [Concomitant]
     Route: 048
     Dates: start: 19990101
  3. CLOPIDOGREL BISULFATE [Concomitant]
     Route: 048
     Dates: start: 20040101
  4. FUROSEMIDE [Concomitant]
     Route: 048
     Dates: start: 20040101
  5. SOTALOL HYDROCHLORIDE [Concomitant]
     Route: 048
     Dates: start: 20040101
  6. PERINDOPRIL [Concomitant]
     Route: 048
     Dates: start: 20051101
  7. LEVOTHYROXINE SODIUM [Concomitant]
     Route: 048
     Dates: start: 20040101

REACTIONS (1)
  - MYOSITIS [None]
